FAERS Safety Report 7967175-9 (Version None)
Quarter: 2011Q4

REPORT INFORMATION
  Report Type: 
  Country: None (occurrence: None)
  Receive Date: 20111209
  Receipt Date: 20111206
  Transmission Date: 20120403
  Serious: Yes (Other)
  Sender: FDA-Public Use
  Company Number: US-PFIZER INC-2011298520

PATIENT
  Sex: Female

DRUGS (2)
  1. METHADONE [Concomitant]
     Indication: DRUG DEPENDENCE
     Dosage: 60 MG, DAILY
  2. DEPO-PROVERA [Suspect]
     Indication: CONTRACEPTION
     Dosage: UNK

REACTIONS (3)
  - ABORTION [None]
  - DRUG INEFFECTIVE [None]
  - UNINTENDED PREGNANCY [None]
